FAERS Safety Report 4509622-0 (Version None)
Quarter: 2004Q4

REPORT INFORMATION
  Report Type: 
  Country: None (occurrence: None)
  Receive Date: 20041124
  Receipt Date: 20030814
  Transmission Date: 20050328
  Serious: Yes (Other)
  Sender: FDA-Public Use
  Company Number: US-BRISTOL-MYERS SQUIBB COMPANY-12357281

PATIENT
  Sex: Male

DRUGS (7)
  1. AVALIDE [Suspect]
  2. LIPITOR [Concomitant]
  3. ZETIA [Concomitant]
  4. NIASPAN [Concomitant]
  5. INSULIN [Concomitant]
  6. GLUCOPHAGE [Concomitant]
  7. TOPROL-XL [Concomitant]

REACTIONS (1)
  - ANAPHYLACTIC REACTION [None]
